FAERS Safety Report 9171409 (Version 1)
Quarter: 2013Q1

REPORT INFORMATION
  Report Type: Spontaneous
  Country: US (occurrence: None)
  Receive Date: 20130307
  Receipt Date: 20130307
  Transmission Date: 20140127
  Serious: Yes (Hospitalization, Other)
  Sender: FDA-Public Use
  Company Number: 2013034547

PATIENT
  Age: 54 Year
  Sex: Female
  Weight: 89.36 kg

DRUGS (1)
  1. HIZENTRA (IMMUNOGLOBULIN HUMAN NORMAL) [Suspect]
     Indication: IMMUNODEFICIENCY COMMON VARIABLE
     Dosage: 10 G 1X/WEEK, STARTED IN OCT-2012 SUBCUTANEOUS)
     Route: 058
     Dates: start: 201210

REACTIONS (2)
  - Ischaemia [None]
  - Blood pressure increased [None]
